FAERS Safety Report 5734333-3 (Version None)
Quarter: 2008Q2

REPORT INFORMATION
  Report Type: 
  Country: None (occurrence: None)
  Receive Date: 20080512
  Receipt Date: 20080502
  Transmission Date: 20081010
  Serious: Yes (Other)
  Sender: FDA-Public Use
  Company Number: US-JNJFOC-20080500836

PATIENT
  Sex: Male
  Weight: 86.18 kg

DRUGS (1)
  1. REMICADE [Suspect]
     Indication: CROHN'S DISEASE
     Dosage: ON ^29-NOV-2008^
     Route: 042

REACTIONS (2)
  - COLON CANCER [None]
  - HYPERSENSITIVITY [None]
